FAERS Safety Report 8542679-9 (Version None)
Quarter: 2012Q3

REPORT INFORMATION
  Report Type: 
  Country: None (occurrence: None)
  Receive Date: 20120727
  Receipt Date: 20120712
  Transmission Date: 20120928
  Serious: Yes (Hospitalization)
  Sender: FDA-Public Use
  Company Number: JP-MSD-1203USA00795

PATIENT

DRUGS (15)
  1. JANUVIA [Suspect]
     Indication: TYPE 2 DIABETES MELLITUS
     Dosage: 25 MG, QD
     Route: 048
     Dates: start: 20110125, end: 20120103
  2. AMLODIPINE BESYLATE [Concomitant]
  3. ALLOPURINOL [Concomitant]
  4. SODIUM BICARBONATE [Concomitant]
  5. WARFARIN SODIUM [Concomitant]
  6. BUFFERIN [Concomitant]
     Dosage: 81 MG, UNK
  7. ENALAPRIL MALEATE [Concomitant]
     Route: 048
  8. LOXONIN [Concomitant]
  9. ARGAMATE JELLY [Concomitant]
  10. PREMINENT TABLETS [Concomitant]
     Route: 048
  11. ACTOS [Concomitant]
     Dates: end: 20120103
  12. CRESTOR [Concomitant]
  13. BISOPROLOL FUMARATE [Concomitant]
  14. AMARYL [Concomitant]
     Dates: end: 20120103
  15. MIGLITOL [Concomitant]
     Dates: end: 20120103

REACTIONS (2)
  - RENAL FAILURE [None]
  - CARDIAC FAILURE [None]
